FAERS Safety Report 24123344 (Version 1)
Quarter: 2024Q3

REPORT INFORMATION
  Report Type: Spontaneous
  Country: US (occurrence: US)
  Receive Date: 20240723
  Receipt Date: 20240723
  Transmission Date: 20241017
  Serious: No
  Sender: OTSUKA
  Company Number: US-OTSUKA-2023_024492

PATIENT
  Age: 7 Decade
  Sex: Female

DRUGS (3)
  1. REXULTI [Suspect]
     Active Substance: BREXPIPRAZOLE
     Indication: Major depression
     Dosage: 2 MG
     Route: 065
     Dates: start: 20220829
  2. DULOXETINE [Concomitant]
     Active Substance: DULOXETINE
     Indication: Major depression
     Dosage: UNK
     Route: 065
  3. SPRAVATO [Concomitant]
     Active Substance: ESKETAMINE
     Indication: Product used for unknown indication
     Dosage: UNK
     Route: 065

REACTIONS (1)
  - Weight increased [Recovering/Resolving]
